FAERS Safety Report 5108593-6 (Version None)
Quarter: 2006Q3

REPORT INFORMATION
  Report Type: 
  Country: None (occurrence: None)
  Receive Date: 20060915
  Receipt Date: 20060825
  Transmission Date: 20061208
  Serious: Yes (Death, Hospitalization)
  Sender: FDA-Public Use
  Company Number: 227709

PATIENT
  Age: 54 Year
  Sex: Female
  Weight: 90 kg

DRUGS (4)
  1. HERCEPTIN [Suspect]
     Indication: BREAST CANCER METASTATIC
     Dosage: 720 MG, SINGLE, INTRAVENOUS
     Route: 042
     Dates: start: 20060622, end: 20060622
  2. PACLITAXEL [Suspect]
     Indication: BREAST CANCER METASTATIC
     Dosage: 80 MG/M2, 1/WEEK, INTRAVENOUS
     Route: 042
     Dates: start: 20060622, end: 20060629
  3. EPIRUBICIN [Concomitant]
  4. RAMIPRIL [Concomitant]

REACTIONS (3)
  - PNEUMOCYSTIS JIROVECI INFECTION [None]
  - PNEUMONITIS [None]
  - SEPSIS [None]
